FAERS Safety Report 5426734-8 (Version None)
Quarter: 2007Q3

REPORT INFORMATION
  Report Type: 
  Country: None (occurrence: None)
  Receive Date: 20070827
  Receipt Date: 20070816
  Transmission Date: 20080115
  Serious: Yes (Death)
  Sender: FDA-Public Use
  Company Number: US-GILEAD-2007-0012714

PATIENT
  Sex: Female
  Weight: 105.33 kg

DRUGS (11)
  1. LETAIRIS [Suspect]
     Indication: PULMONARY HYPERTENSION
     Route: 048
     Dates: start: 20070714, end: 20070801
  2. VIAGRA [Concomitant]
     Indication: PULMONARY HYPERTENSION
     Route: 048
     Dates: start: 20070529, end: 20070801
  3. REVATIO [Concomitant]
     Dates: start: 20070208, end: 20070528
  4. PROCARDIA [Concomitant]
     Dates: start: 20070202, end: 20070801
  5. LASIX [Concomitant]
     Route: 048
     Dates: start: 20070202, end: 20070801
  6. K-DUR 10 [Concomitant]
     Indication: SUPPLEMENTATION THERAPY
     Route: 048
     Dates: start: 20070202, end: 20070801
  7. FERROUS SULFATE TAB [Concomitant]
     Route: 048
     Dates: start: 20070529, end: 20070801
  8. CLARITIN [Concomitant]
     Route: 048
     Dates: start: 20070529, end: 20070801
  9. FLEXERIL [Concomitant]
     Route: 048
     Dates: start: 20070202, end: 20070801
  10. BENADRYL [Concomitant]
     Dates: start: 20070529, end: 20070801
  11. TYLENOL [Concomitant]
     Indication: PAIN
     Dates: start: 20070202, end: 20070801

REACTIONS (5)
  - ABDOMINAL PAIN [None]
  - CONSTIPATION [None]
  - DEATH [None]
  - DYSPNOEA [None]
  - NASAL CONGESTION [None]
